FAERS Safety Report 12088655 (Version 2)
Quarter: 2016Q1

REPORT INFORMATION
  Report Type: Spontaneous
  Country: US (occurrence: US)
  Receive Date: 20160218
  Receipt Date: 20160317
  Transmission Date: 20160526
  Serious: No
  Sender: FDA-Public Use
  Company Number: US-JNJFOC-20160212695

PATIENT
  Sex: Male
  Weight: 97.52 kg

DRUGS (1)
  1. GENERIC FENTANYL [Suspect]
     Active Substance: FENTANYL
     Indication: PAIN
     Route: 062
     Dates: start: 2009

REACTIONS (5)
  - Wrong technique in product usage process [Unknown]
  - Product adhesion issue [Unknown]
  - Drug dose omission [Unknown]
  - Application site discolouration [Unknown]
  - Product quality issue [Unknown]
